FAERS Safety Report 8121104-6 (Version None)
Quarter: 2012Q1

REPORT INFORMATION
  Report Type: 
  Country: None (occurrence: None)
  Receive Date: 20120208
  Receipt Date: 20120131
  Transmission Date: 20120608
  Serious: Yes (Hospitalization)
  Sender: FDA-Public Use
  Company Number: US-BRISTOL-MYERS SQUIBB COMPANY-15769177

PATIENT
  Age: 60 Year
  Sex: Male
  Weight: 68 kg

DRUGS (6)
  1. TAXOL [Suspect]
     Indication: NON-SMALL CELL LUNG CANCER
     Dosage: DELAY 20DAYS. 45 MG/M2. LAST DOSE:14MAR11
     Dates: start: 20110207, end: 20110314
  2. CARBOPLATIN [Suspect]
     Indication: NON-SMALL CELL LUNG CANCER
     Dosage: AUC= 2. LAST DOSE:18MAR11 COURSES:13
     Dates: start: 20110207
  3. ERBITUX [Suspect]
     Indication: NON-SMALL CELL LUNG CANCER
     Dosage: HELD ON 92 DAYS. 250/M2. LAST DOSE:02MAY11
     Dates: start: 20110207, end: 20110502
  4. MOBIC [Suspect]
     Route: 048
  5. CARAFATE [Concomitant]
     Route: 048
  6. PRILOSEC [Concomitant]
     Route: 048

REACTIONS (3)
  - NEUTROPENIA [None]
  - OESOPHAGITIS [None]
  - PANCYTOPENIA [None]
